FAERS Safety Report 4848189-4 (Version None)
Quarter: 2005Q4

REPORT INFORMATION
  Report Type: 
  Country: None (occurrence: None)
  Receive Date: 20051208
  Receipt Date: 20051128
  Transmission Date: 20060501
  Serious: Yes (Other)
  Sender: FDA-Public Use
  Company Number: US-ABBOTT-05P-163-0318034-00

PATIENT
  Sex: Female
  Weight: 89.892 kg

DRUGS (5)
  1. HUMIRA [Suspect]
     Indication: DRUG USE FOR UNKNOWN INDICATION
     Route: 058
     Dates: start: 20050501
  2. ENALAPRIL MALEATE [Concomitant]
     Indication: CARDIAC DISORDER
     Route: 048
  3. METOPROLOL TARTRATE [Concomitant]
     Indication: CARDIAC DISORDER
     Route: 048
  4. BUPROPION HYDROCHLORIDE [Concomitant]
     Indication: DEPRESSION
     Route: 048
  5. ZETIA [Concomitant]
     Indication: CARDIAC DISORDER
     Route: 048

REACTIONS (1)
  - HAEMORRHAGE [None]
